FAERS Safety Report 10787667 (Version 1)
Quarter: 2015Q1

REPORT INFORMATION
  Report Type: Spontaneous
  Country: US (occurrence: US)
  Receive Date: 20150212
  Receipt Date: 20150212
  Transmission Date: 20150721
  Serious: No
  Sender: FDA-Public Use
  Company Number: US-009507513-1502USA004803

PATIENT
  Sex: Female

DRUGS (7)
  1. CALCIUM (UNSPECIFIED) [Concomitant]
     Active Substance: CALCIUM
  2. ATORVASTATIN [Concomitant]
     Active Substance: ATORVASTATIN
  3. ASPIRIN. [Concomitant]
     Active Substance: ASPIRIN
  4. SERTRALINE HYDROCHLORIDE. [Concomitant]
     Active Substance: SERTRALINE HYDROCHLORIDE
  5. JANUMET XR [Suspect]
     Active Substance: METFORMIN HYDROCHLORIDE\SITAGLIPTIN PHOSPHATE
     Indication: DIABETES MELLITUS
     Dosage: 2 DF, QD
     Route: 048
     Dates: start: 20141111
  6. GLIMEPIRIDE. [Concomitant]
     Active Substance: GLIMEPIRIDE
  7. PRINIVIL [Concomitant]
     Active Substance: LISINOPRIL

REACTIONS (2)
  - Blood glucose increased [Not Recovered/Not Resolved]
  - Product physical issue [Unknown]
